FAERS Safety Report 6109473-X (Version None)
Quarter: 2009Q1

REPORT INFORMATION
  Report Type: 
  Country: None (occurrence: None)
  Receive Date: 20090310
  Receipt Date: 20090302
  Transmission Date: 20090719
  Serious: Yes (Hospitalization, Other)
  Sender: FDA-Public Use
  Company Number: US-ABBOTT-09P-163-0559944-00

PATIENT
  Sex: Male
  Weight: 81.72 kg

DRUGS (7)
  1. HUMIRA [Suspect]
     Indication: CROHN'S DISEASE
     Dates: start: 20090116, end: 20090116
  2. OXYCODONE [Concomitant]
     Indication: PAIN
     Dosage: PRN
  3. PROCECET [Concomitant]
     Indication: PAIN
  4. KLONOPIN [Concomitant]
     Indication: CONVULSION PROPHYLAXIS
     Dosage: PRN
  5. KEPPRA [Concomitant]
     Indication: CONVULSION PROPHYLAXIS
  6. TRILEPTAL [Concomitant]
     Indication: CONVULSION PROPHYLAXIS
  7. XANAX [Concomitant]
     Indication: ANXIETY

REACTIONS (5)
  - ABDOMINAL PAIN [None]
  - DEHYDRATION [None]
  - DIARRHOEA [None]
  - NAUSEA [None]
  - VOMITING [None]
